FAERS Safety Report 21553138 (Version 1)
Quarter: 2022Q4

REPORT INFORMATION
  Report Type: Report from Study
  Country: US (occurrence: US)
  Receive Date: 20221104
  Receipt Date: 20221104
  Transmission Date: 20230113
  Serious: No
  Sender: FDA-Public Use
  Company Number: US-ABBVIE-22K-163-4489110-00

PATIENT
  Sex: Female

DRUGS (10)
  1. SKYRIZI [Suspect]
     Active Substance: RISANKIZUMAB-RZAA
     Indication: Psoriatic arthropathy
     Dosage: WEEK 4/FORM STRENGTH: 150 MILLIGRAM?LAST ADMIN DATE- 2022
     Route: 058
     Dates: start: 20220421
  2. SKYRIZI [Suspect]
     Active Substance: RISANKIZUMAB-RZAA
     Dosage: FORM STRENGTH: 150 MILLIGRAM?FIRST ADMIN DATE- 2022?LAST ADMIN DATE- 2022
     Route: 058
  3. 180 mg Allegra allergy [Concomitant]
     Indication: Product used for unknown indication
     Route: 048
  4. ASPIRIN [Concomitant]
     Active Substance: ASPIRIN
     Indication: Product used for unknown indication
     Dosage: LOW
     Route: 048
  5. 1 mg Folic acid [Concomitant]
     Indication: Product used for unknown indication
     Route: 048
  6. 2.5 mg Methotrexate [Concomitant]
     Indication: Product used for unknown indication
     Route: 048
  7. PROTONIX [Concomitant]
     Active Substance: PANTOPRAZOLE SODIUM
     Indication: Product used for unknown indication
     Dosage: INJ 40MG
     Route: 065
  8. SINGULAIR [Concomitant]
     Active Substance: MONTELUKAST SODIUM
     Indication: Product used for unknown indication
     Route: 065
  9. VITAMIN D [Concomitant]
     Active Substance: VITAMIN D NOS
     Indication: Product used for unknown indication
     Dosage: 50000 UNIT
     Route: 048
  10. 10 mg Zyrtec allergy [Concomitant]
     Indication: Product used for unknown indication
     Route: 048

REACTIONS (6)
  - Psoriatic arthropathy [Not Recovered/Not Resolved]
  - Rash [Not Recovered/Not Resolved]
  - Pain [Not Recovered/Not Resolved]
  - Loss of personal independence in daily activities [Not Recovered/Not Resolved]
  - Drug ineffective [Not Recovered/Not Resolved]
  - Discomfort [Not Recovered/Not Resolved]
